FAERS Safety Report 9547804 (Version 1)
Quarter: 2013Q3

REPORT INFORMATION
  Report Type: Spontaneous
  Country: US (occurrence: None)
  Receive Date: 20130719
  Receipt Date: 20130719
  Transmission Date: 20140515
  Serious: Yes (Hospitalization)
  Sender: FDA-Public Use
  Company Number: 2012BAX003273

PATIENT
  Age: 61 Year
  Sex: Male
  Weight: 96.6 kg

DRUGS (6)
  1. CYCLOPHOSPHAMIDE [Suspect]
     Indication: DIFFUSE LARGE B-CELL LYMPHOMA
     Dosage: 1665 MG, CYCLIC), UNKNOWN
     Dates: start: 20111122, end: 20120306
  2. VELCADE (BORTEZOMIB) [Suspect]
     Indication: DIFFUSE LARGE B-CELL LYMPHOMA
     Dosage: 2.8 MG, UNKNOWN, UNKNOWN
     Dates: start: 20111121, end: 20120308
  3. RITUXIMAB (RITUXIMAB) [Suspect]
     Indication: DIFFUSE LARGE B-CELL LYMPHOMA
     Dosage: 832 MG, CYCLIC, UNKNOWN
     Dates: start: 20111121, end: 20120305
  4. DOXORUBICIN [Suspect]
     Indication: DIFFUSE LARGE B-CELL LYMPHOMA
     Dosage: 111 MG, CYCLIC, UNKNOWN
     Dates: start: 20111122, end: 20120306
  5. VINCRISTINE [Suspect]
     Indication: DIFFUSE LARGE B-CELL LYMPHOMA
     Dosage: 2 MG, CYCLIC, UNKNOWN
     Dates: start: 20111122, end: 20120306
  6. PREDNISONE (PREDNISONE) [Suspect]
     Indication: DIFFUSE LARGE B-CELL LYMPHOMA
     Dosage: 100 MG, CYCLIC, UNKNOWN
     Dates: start: 20111121, end: 20120306

REACTIONS (1)
  - Pyrexia [None]
